FAERS Safety Report 12298780 (Version 1)
Quarter: 2016Q2

REPORT INFORMATION
  Report Type: Spontaneous
  Country: US (occurrence: US)
  Receive Date: 20160425
  Receipt Date: 20160425
  Transmission Date: 20160815
  Serious: Yes (Other)
  Sender: FDA-Public Use
  Company Number: US-BEH-2016061455

PATIENT
  Sex: Female
  Weight: 72 kg

DRUGS (19)
  1. PREDNISONE. [Concomitant]
     Active Substance: PREDNISONE
  2. HIZENTRA [Suspect]
     Active Substance: HUMAN IMMUNOGLOBULIN G
     Indication: IMMUNODEFICIENCY COMMON VARIABLE
     Route: 058
     Dates: start: 20110426
  3. VOLTAREN [Concomitant]
     Active Substance: DICLOFENAC SODIUM
  4. MELOXICAM. [Concomitant]
     Active Substance: MELOXICAM
  5. ESTRACE [Concomitant]
     Active Substance: ESTRADIOL
  6. PLAVIX [Concomitant]
     Active Substance: CLOPIDOGREL BISULFATE
  7. PRILOCAINE [Concomitant]
     Active Substance: PRILOCAINE
  8. ZOLPIDEM [Concomitant]
     Active Substance: ZOLPIDEM\ZOLPIDEM TARTRATE
  9. LOVASTATIN. [Concomitant]
     Active Substance: LOVASTATIN
  10. LISINOPRIL. [Concomitant]
     Active Substance: LISINOPRIL
  11. LIDOCAINE. [Concomitant]
     Active Substance: LIDOCAINE
  12. EPIPEN [Concomitant]
     Active Substance: EPINEPHRINE
  13. CALCIUM [Concomitant]
     Active Substance: CALCIUM
  14. AMLODIPINE [Concomitant]
     Active Substance: AMLODIPINE BESYLATE
  15. DIPHENHYDRAMINE. [Concomitant]
     Active Substance: DIPHENHYDRAMINE
  16. ALLOPURINOL. [Concomitant]
     Active Substance: ALLOPURINOL
  17. OMEPRAZOLE. [Concomitant]
     Active Substance: OMEPRAZOLE
  18. ACETAMINOPHEN. [Concomitant]
     Active Substance: ACETAMINOPHEN
  19. ALBUTEROL. [Concomitant]
     Active Substance: ALBUTEROL

REACTIONS (2)
  - Kidney infection [Unknown]
  - Escherichia infection [Unknown]
